FAERS Safety Report 7909904-6 (Version None)
Quarter: 2011Q4

REPORT INFORMATION
  Report Type: 
  Country: None (occurrence: None)
  Receive Date: 20111111
  Receipt Date: 20111024
  Transmission Date: 20120403
  Serious: Yes (Death, Other)
  Sender: FDA-Public Use
  Company Number: JP-ROCHE-761091

PATIENT
  Age: 3 Month
  Sex: Male
  Weight: 6.7 kg

DRUGS (16)
  1. VENOGLOBULIN [Concomitant]
     Route: 042
     Dates: start: 20081226, end: 20081228
  2. MINERALIN [Concomitant]
     Route: 042
     Dates: start: 20090101, end: 20090119
  3. ASPIRIN [Concomitant]
     Route: 042
     Dates: start: 20090103, end: 20090107
  4. ROCEPHIN [Suspect]
     Indication: MENINGITIS BACTERIAL
     Route: 042
     Dates: start: 20081226, end: 20090110
  5. NAFAMOSTAT MESILATE [Concomitant]
     Route: 042
     Dates: start: 20081226, end: 20090109
  6. NOVOLIN R [Concomitant]
     Route: 042
     Dates: start: 20081230, end: 20081231
  7. SODIUM BICARBONATE [Concomitant]
     Route: 042
     Dates: start: 20081230, end: 20081230
  8. MEROPENEM [Concomitant]
     Route: 041
     Dates: start: 20081226, end: 20090109
  9. FAMOTIDINE [Concomitant]
     Route: 042
     Dates: start: 20081226, end: 20090113
  10. WAKOBITAL [Concomitant]
     Route: 054
     Dates: start: 20081226, end: 20090110
  11. NAFAMOSTAT MESILATE [Concomitant]
     Route: 042
     Dates: start: 20090111, end: 20090113
  12. AMINO ACID INJ [Concomitant]
     Route: 042
     Dates: start: 20090103, end: 20090113
  13. DECADRON [Concomitant]
     Route: 042
     Dates: start: 20081226, end: 20081228
  14. AMINO ACIDS/ELECTROLYTES NOS/GLUCOSE/VITAMINS NOS [Concomitant]
     Route: 042
     Dates: start: 20090101, end: 20090119
  15. MANNITOL [Concomitant]
     Route: 042
     Dates: start: 20081226, end: 20090109
  16. MIDAZOLAM HCL [Concomitant]
     Route: 042
     Dates: start: 20081230, end: 20090109

REACTIONS (9)
  - CONVULSION [None]
  - METABOLIC ACIDOSIS [None]
  - PLATELET COUNT INCREASED [None]
  - TOXIC EPIDERMAL NECROLYSIS [None]
  - RESPIRATORY FAILURE [None]
  - CYTOMEGALOVIRUS INFECTION [None]
  - DISSEMINATED INTRAVASCULAR COAGULATION [None]
  - DURAL ABSCESS [None]
  - HEPATIC FUNCTION ABNORMAL [None]
